FAERS Safety Report 9238345 (Version 1)
Quarter: 2013Q2

REPORT INFORMATION
  Report Type: Spontaneous
  Country: SE (occurrence: None)
  Receive Date: 20130416
  Receipt Date: 20130416
  Transmission Date: 20140414
  Serious: Yes (Other)
  Sender: FDA-Public Use
  Company Number: 1672488

PATIENT
  Age: 66 Year
  Sex: Female

DRUGS (2)
  1. (CARBOPLATIN) [Suspect]
     Indication: PRODUCT USED FOR UNKNOWN INDICATION
  2. (ETOPOSIDE) [Suspect]
     Indication: PRODUCT USED FOR UNKNOWN INDICATION

REACTIONS (2)
  - Pancytopenia [None]
  - Sepsis [None]
